FAERS Safety Report 13123539 (Version 2)
Quarter: 2017Q1

REPORT INFORMATION
  Report Type: Report from Study
  Country: US (occurrence: US)
  Receive Date: 20170117
  Receipt Date: 20170130
  Transmission Date: 20170428
  Serious: Yes (Death, Hospitalization)
  Sender: FDA-Public Use
  Company Number: US-ACTELION-A-US2017-148069

PATIENT
  Age: 55 Year
  Sex: Female

DRUGS (28)
  1. OPSUMIT [Suspect]
     Active Substance: MACITENTAN
     Indication: PULMONARY HYPERTENSION
     Dosage: 10 MG, QD
     Route: 048
  2. MAGNESIUM SULFATE. [Concomitant]
     Active Substance: MAGNESIUM SULFATE
     Dosage: 1 G, ONCE
     Route: 042
  3. AMINOCAPROIC ACID. [Concomitant]
     Active Substance: AMINOCAPROIC ACID
     Dosage: 1 G, PER HR
     Dates: end: 20161225
  4. NOREPINEPHRINE [Concomitant]
     Active Substance: NOREPINEPHRINE\NOREPINEPHRINE BITARTRATE
     Dosage: 4-10 PER MIN.
     Dates: end: 20161222
  5. FENTANYL. [Concomitant]
     Active Substance: FENTANYL
     Dosage: 3 ML/HR, UNK
  6. INSULIN LISPRO [Concomitant]
     Active Substance: INSULIN LISPRO
     Dosage: 0-7 U, Q4HRS
  7. SODIUM CHLORIDE. [Concomitant]
     Active Substance: SODIUM CHLORIDE
     Dosage: 5 ML/HR, UNK
  8. SODIUM CHLORIDE. [Concomitant]
     Active Substance: SODIUM CHLORIDE
     Dosage: 3 ML/HR, UNK
     Dates: end: 20161224
  9. OXYMETAZOLINE [Concomitant]
     Active Substance: OXYMETAZOLINE
     Dosage: 2 SPRAY, EACH NARE
     Route: 045
  10. NICARDIPINE [Concomitant]
     Active Substance: NICARDIPINE
     Dosage: 2.5-15 MG/HR, UNK
  11. HEPARIN SODIUM PORCINE [Concomitant]
     Active Substance: HEPARIN SODIUM
     Dosage: 600 U, PER HR.
     Dates: end: 20161223
  12. PROPOFOL. [Concomitant]
     Active Substance: PROPOFOL
     Dosage: 0-50 MCG/KG/MIN
  13. POLYETHYLENE GLYCOL [Concomitant]
     Active Substance: POLYETHYLENE GLYCOLS
     Dosage: 17 G, QD
     Route: 048
  14. SODIUM CHLORIDE. [Concomitant]
     Active Substance: SODIUM CHLORIDE
     Dosage: 2 SPRAY EACH NARE, TID
     Route: 045
  15. SODIUM CHLORIDE. [Concomitant]
     Active Substance: SODIUM CHLORIDE
     Dosage: 30 ML/HR, UNK
  16. SILDENAFIL. [Concomitant]
     Active Substance: SILDENAFIL
     Dosage: 20 MG, Q 8 HRS, SCH
  17. LINEZOLID POLPHARMA [Concomitant]
     Dosage: 600 UNK, Q12HRS
     Route: 042
  18. POTASSIUM CHLORIDE. [Concomitant]
     Active Substance: POTASSIUM CHLORIDE
     Dosage: 20 MEQ, BID,
     Route: 051
  19. METHYLPREDNISOLONE. [Concomitant]
     Active Substance: METHYLPREDNISOLONE
     Dosage: 20 MG, QD
     Route: 042
  20. SODIUM CHLORIDE. [Concomitant]
     Active Substance: SODIUM CHLORIDE
     Dosage: 10 ML, Q8H
     Route: 042
  21. PANTOPRAZOLE [Concomitant]
     Active Substance: PANTOPRAZOLE SODIUM
     Dosage: 40 MG, BEFORE BREAKFAST
     Route: 042
  22. FLUCONAZOLE. [Concomitant]
     Active Substance: FLUCONAZOLE
     Dosage: 200 MG, QD
     Route: 042
  23. INSULIN REGULAR [Concomitant]
     Active Substance: INSULIN NOS
     Dosage: 1 U/ML, UNK
  24. AZTREONAM. [Concomitant]
     Active Substance: AZTREONAM
     Dosage: 2 G, Q 8H
     Route: 042
  25. LEVOTHYROXINE. [Concomitant]
     Active Substance: LEVOTHYROXINE
     Dosage: 50 MCG, QD
     Route: 042
  26. FUROSEMIDE. [Concomitant]
     Active Substance: FUROSEMIDE
     Dosage: 20 MG, Q 8HRS.
     Route: 042
  27. DOCUSATE SODIUM. [Concomitant]
     Active Substance: DOCUSATE SODIUM
     Dosage: 100 MG, BID
     Route: 048
  28. DEXTROSE. [Concomitant]
     Active Substance: DEXTROSE
     Dosage: 40 ML/HR, UNK
     Dates: end: 20161228

REACTIONS (18)
  - Fluid overload [Unknown]
  - Haemorrhage [Unknown]
  - Acute respiratory failure [Unknown]
  - Cardiac valve disease [Unknown]
  - Adhesion [Unknown]
  - Cardiac arrest [Unknown]
  - Extracorporeal membrane oxygenation [Unknown]
  - Transaminases increased [Unknown]
  - Anaemia [Unknown]
  - Hepatomegaly [Unknown]
  - Hypoxic-ischaemic encephalopathy [Fatal]
  - Lung transplant [Unknown]
  - Thrombocytopenia [Unknown]
  - Pulmonary oedema [Unknown]
  - Brain injury [Fatal]
  - Ischaemic stroke [Unknown]
  - Brain oedema [Unknown]
  - Tracheostomy [Unknown]

NARRATIVE: CASE EVENT DATE: 20161104
